FAERS Safety Report 16142851 (Version 1)
Quarter: 2019Q2

REPORT INFORMATION
  Report Type: Spontaneous
  Country: FR (occurrence: FR)
  Receive Date: 20190401
  Receipt Date: 20190401
  Transmission Date: 20190711
  Serious: Yes (Other)
  Sender: FDA-Public Use
  Company Number: FR-MYLANLABS-2019M1028912

PATIENT
  Age: 61 Year
  Sex: Female

DRUGS (7)
  1. IRINOTECAN MYLAN [Suspect]
     Active Substance: IRINOTECAN
     Indication: ADENOCARCINOMA OF COLON
     Dosage: 200 MILLIGRAM, CYCLE
     Route: 042
     Dates: start: 20181031, end: 20181031
  2. ATROPINE. [Concomitant]
     Active Substance: ATROPINE
     Dosage: UNK
  3. OXALIPLATIN. [Suspect]
     Active Substance: OXALIPLATIN
     Indication: ADENOCARCINOMA OF COLON
     Dosage: 115 MILLIGRAM, CYCLE
     Route: 042
     Dates: start: 20181031, end: 20181031
  4. METHYLPREDNISOLONE. [Concomitant]
     Active Substance: METHYLPREDNISOLONE
     Dosage: UNK
  5. EMEND [Concomitant]
     Active Substance: APREPITANT
     Dosage: UNK
  6. VECTIBIX [Suspect]
     Active Substance: PANITUMUMAB
     Indication: ADENOCARCINOMA OF COLON
     Dosage: 260 MILLIGRAM, CYCLE
     Route: 042
     Dates: start: 20181031, end: 20181031
  7. SETOFILM [Concomitant]
     Active Substance: ONDANSETRON
     Dosage: UNK

REACTIONS (3)
  - Hypothermia [Recovered/Resolved]
  - Paraesthesia [Recovered/Resolved]
  - Nausea [Recovered/Resolved]

NARRATIVE: CASE EVENT DATE: 20181031
